FAERS Safety Report 13736608 (Version 2)
Quarter: 2017Q3

REPORT INFORMATION
  Report Type: Spontaneous
  Country: US (occurrence: US)
  Receive Date: 20170710
  Receipt Date: 20170807
  Transmission Date: 20171127
  Serious: Yes (Hospitalization, Other)
  Sender: FDA-Public Use
  Company Number: US-SMITH AND NEPHEW, INC-2017SMT00443

PATIENT
  Age: 84 Year
  Sex: Male
  Weight: 117.91 kg

DRUGS (5)
  1. REGRANEX [Suspect]
     Active Substance: BECAPLERMIN
     Indication: WOUND
     Dosage: UNK, 1X/DAY FOR 12 HOURS ON AND 12 HOURS OFF
     Route: 061
     Dates: start: 20170608, end: 20170613
  2. REGRANEX [Suspect]
     Active Substance: BECAPLERMIN
     Dosage: ^USED LESS,^ 1X/DAY FOR 12 HOURS ON AND 12 HOURS OFF
     Route: 061
     Dates: start: 20170614, end: 20170616
  3. COZAAR [Concomitant]
     Active Substance: LOSARTAN POTASSIUM
  4. UNSPECIFIED HEART MEDICATIONS [Concomitant]
     Active Substance: UNSPECIFIED INGREDIENT
  5. COREG [Concomitant]
     Active Substance: CARVEDILOL

REACTIONS (7)
  - Wound infection [Recovered/Resolved]
  - Rash erythematous [Recovering/Resolving]
  - Toe amputation [Recovered/Resolved with Sequelae]
  - Wound secretion [Unknown]
  - Wound haemorrhage [Unknown]
  - Blood glucose decreased [Recovered/Resolved]
  - Application site pain [Recovering/Resolving]

NARRATIVE: CASE EVENT DATE: 201706
